FAERS Safety Report 6122171-1 (Version None)
Quarter: 2009Q1

REPORT INFORMATION
  Report Type: 
  Country: None (occurrence: None)
  Receive Date: 20090318
  Receipt Date: 20090311
  Transmission Date: 20090719
  Serious: Yes (Hospitalization, Other)
  Sender: FDA-Public Use
  Company Number: DE-JNJFOC-20090302392

PATIENT
  Age: 70 Year
  Sex: Male
  Weight: 62 kg

DRUGS (7)
  1. FENTANYL-25 [Suspect]
     Indication: PANCREATIC CARCINOMA METASTATIC
     Route: 062
  2. URSO FALK [Concomitant]
     Indication: PANCREATIC CARCINOMA METASTATIC
     Route: 048
  3. SUCRALFATE [Concomitant]
     Indication: GASTROINTESTINAL HAEMORRHAGE
     Route: 048
  4. INSULIN [Concomitant]
     Indication: DIABETES MELLITUS
     Route: 058
  5. METAMIZOLE [Concomitant]
     Indication: PANCREATIC CARCINOMA METASTATIC
     Route: 048
  6. PANTOZOL [Concomitant]
     Indication: GASTROINTESTINAL HAEMORRHAGE
     Route: 048
  7. PANZYTRAT [Concomitant]
     Indication: PANCREATIC CARCINOMA METASTATIC
     Route: 048

REACTIONS (2)
  - FAECALOMA [None]
  - HOSPITALISATION [None]
